FAERS Safety Report 9258451 (Version 1)
Quarter: 2013Q1

REPORT INFORMATION
  Report Type: Spontaneous
  Country: US (occurrence: None)
  Receive Date: 20121212
  Receipt Date: 20121212
  Transmission Date: 20140127
  Serious: No
  Sender: FDA-Public Use
  Company Number: 1211USA001311

PATIENT
  Age: 65 Year
  Sex: Male

DRUGS (4)
  1. VICTRELIS [Suspect]
     Indication: HEPATITIS C
     Route: 048
  2. PEGASYS [Suspect]
  3. RIBAPAK [Suspect]
  4. NEUPOGEN (FILGRASTIM) [Concomitant]

REACTIONS (1)
  - Drug ineffective [None]
